FAERS Safety Report 5487517-6 (Version None)
Quarter: 2007Q4

REPORT INFORMATION
  Report Type: 
  Country: None (occurrence: None)
  Receive Date: 20071015
  Receipt Date: 20070927
  Transmission Date: 20080405
  Serious: Yes (Disabling)
  Sender: FDA-Public Use
  Company Number: 8026392

PATIENT
  Age: 11 Year
  Sex: Female
  Weight: 45.5 kg

DRUGS (11)
  1. KEPPRA [Suspect]
     Indication: CONVULSION
     Dosage: 250 MG 2/D PO
     Route: 048
     Dates: start: 20070514, end: 20070527
  2. KEPPRA [Suspect]
     Indication: CONVULSION
     Dosage: 750 MG /D PO
     Route: 048
     Dates: start: 20070528, end: 20070610
  3. KEPPRA [Suspect]
     Indication: CONVULSION
     Dosage: 500 MG 2/D PO
     Route: 048
     Dates: start: 20070610, end: 20070601
  4. KEPPRA [Suspect]
     Indication: CONVULSION
     Dosage: 750 MG /D PO
     Route: 048
     Dates: start: 20070601
  5. KEPPRA [Suspect]
     Indication: CONVULSION
     Dosage: 625 MG /D PO
     Route: 048
  6. RENITEC [Concomitant]
  7. COZAAR [Concomitant]
  8. SANDIMMUNE [Concomitant]
  9. KALCIPOS [Concomitant]
  10. PREDNISOLONE [Concomitant]
  11. OMEPRAZOLE [Concomitant]

REACTIONS (3)
  - DEAFNESS UNILATERAL [None]
  - DIZZINESS [None]
  - DYSSTASIA [None]
